FAERS Safety Report 10914290 (Version 6)
Quarter: 2015Q3

REPORT INFORMATION
  Report Type: Report from Study
  Country: US (occurrence: US)
  Receive Date: 20150311
  Receipt Date: 20150721
  Transmission Date: 20151125
  Serious: Yes (Death, Hospitalization)
  Sender: FDA-Public Use
  Company Number: 2015SGN00118

PATIENT
  Age: 46 Year
  Sex: Male
  Weight: 124.5 kg

DRUGS (9)
  1. VINBLASTINE [Suspect]
     Active Substance: VINBLASTINE
     Indication: HODGKIN^S DISEASE
     Dosage: UNK, QCYCLE
     Route: 042
     Dates: start: 20140718, end: 20141121
  2. BRENTUXIMAB VEDOTIN [Suspect]
     Active Substance: BRENTUXIMAB VEDOTIN
     Indication: HODGKIN^S DISEASE
     Dosage: 1.8 MG/KG, QCYCLE
     Route: 042
     Dates: start: 20150112
  3. BLEOMYCIN [Suspect]
     Active Substance: BLEOMYCIN SULFATE
     Indication: HODGKIN^S DISEASE
     Dosage: UNK UNK, QCYCLE
     Route: 042
     Dates: start: 20140718, end: 20141121
  4. METRONIDAZOLE. [Concomitant]
     Active Substance: METRONIDAZOLE
  5. IBUPROFEN. [Concomitant]
     Active Substance: IBUPROFEN
  6. DOXORUBICIN [Suspect]
     Active Substance: DOXORUBICIN
     Indication: HODGKIN^S DISEASE
     Dosage: UNK UNK, QCYCLE
     Route: 042
     Dates: start: 20140718, end: 20141121
  7. PROCHLORPERAZINE. [Concomitant]
     Active Substance: PROCHLORPERAZINE
  8. OXYCODONE [Concomitant]
     Active Substance: OXYCODONE
  9. DACARBAZINE. [Suspect]
     Active Substance: DACARBAZINE
     Indication: HODGKIN^S DISEASE
     Dosage: UNK, QCYCLE
     Route: 042
     Dates: start: 20140718, end: 20141121

REACTIONS (18)
  - Acute hepatic failure [Fatal]
  - Pulmonary toxicity [None]
  - Cytomegalovirus infection [None]
  - Ileus [None]
  - Hepatic fibrosis [None]
  - Histiocytosis haematophagic [Fatal]
  - Hepatitis [Not Recovered/Not Resolved]
  - Sepsis [Fatal]
  - Blood potassium decreased [None]
  - Hepatorenal syndrome [None]
  - Renal failure [Fatal]
  - Portal hypertension [None]
  - Candida test positive [None]
  - Blood magnesium decreased [None]
  - Constipation [None]
  - Diarrhoea [None]
  - Intestinal obstruction [None]
  - Dialysis [None]

NARRATIVE: CASE EVENT DATE: 20150126
